FAERS Safety Report 21560865 (Version 2)
Quarter: 2022Q4

REPORT INFORMATION
  Report Type: Spontaneous
  Country: US (occurrence: US)
  Receive Date: 20221107
  Receipt Date: 20221220
  Transmission Date: 20230112
  Serious: No
  Sender: FDA-Public Use
  Company Number: US-GLAXOSMITHKLINE-USCH2022042147

PATIENT

DRUGS (2)
  1. ADVIL LIQUI-GELS [Suspect]
     Active Substance: IBUPROFEN
     Indication: Product used for unknown indication
     Dosage: UNK
  2. ADVIL LIQUI-GELS [Suspect]
     Active Substance: IBUPROFEN
     Dosage: 1 DF, BID
     Dates: start: 202210

REACTIONS (2)
  - Incorrect dose administered [Unknown]
  - Product complaint [Unknown]
